FAERS Safety Report 7421890-4 (Version None)
Quarter: 2011Q2

REPORT INFORMATION
  Report Type: 
  Country: None (occurrence: None)
  Receive Date: 20110418
  Receipt Date: 20110328
  Transmission Date: 20111010
  Serious: No
  Sender: FDA-Public Use
  Company Number: AR-ASTRAZENECA-2011SE13664

PATIENT
  Age: 46 Year
  Sex: Female

DRUGS (4)
  1. LITHIUM [Concomitant]
     Indication: BIPOLAR DISORDER
     Route: 048
  2. L-METHYLFOLATE [Concomitant]
     Indication: BIPOLAR II DISORDER
     Route: 065
  3. QUETIAPINE [Suspect]
     Indication: BIPOLAR II DISORDER
     Route: 048
     Dates: start: 20101201, end: 20110222
  4. LITHIUM [Concomitant]
     Route: 048

REACTIONS (6)
  - FEELING ABNORMAL [None]
  - TREMOR [None]
  - NEUTROPENIA [None]
  - DIARRHOEA [None]
  - DIZZINESS [None]
  - VOMITING [None]
